FAERS Safety Report 8217273-X (Version None)
Quarter: 2012Q1

REPORT INFORMATION
  Report Type: 
  Country: None (occurrence: None)
  Receive Date: 20120319
  Receipt Date: 20120314
  Transmission Date: 20120608
  Serious: No
  Sender: FDA-Public Use
  Company Number: US-PFIZER INC-2012068234

PATIENT
  Sex: Male
  Weight: 72.109 kg

DRUGS (1)
  1. VIAGRA [Suspect]
     Indication: PENIS DISORDER
     Dosage: 50 MG, AS NEEDED
     Route: 048
     Dates: start: 20120301

REACTIONS (3)
  - PENILE CURVATURE [None]
  - PENILE PAIN [None]
  - ERECTION INCREASED [None]
